FAERS Safety Report 25868791 (Version 2)
Quarter: 2025Q4

REPORT INFORMATION
  Report Type: Report from Study
  Country: IN (occurrence: IN)
  Receive Date: 20251001
  Receipt Date: 20251230
  Transmission Date: 20260117
  Serious: Yes (Other)
  Sender: DAIICHI
  Company Number: IN-AstraZeneca-CH-00956557A

PATIENT
  Age: 55 Year
  Sex: Female
  Weight: 60 kg

DRUGS (1)
  1. ENHERTU [Suspect]
     Active Substance: FAM-TRASTUZUMAB DERUXTECAN-NXKI
     Indication: Supportive care
     Dosage: UNK
     Route: 042
     Dates: start: 202505

REACTIONS (10)
  - Neuropathy peripheral [Recovered/Resolved]
  - Taste disorder [Recovered/Resolved]
  - Hypokinesia [Recovered/Resolved]
  - Sleep disorder [Recovered/Resolved]
  - Abdominal distension [Recovered/Resolved]
  - Myalgia [Recovered/Resolved]
  - Abdominal pain upper [Recovered/Resolved]
  - Decreased appetite [Recovered/Resolved]
  - Asthenia [Recovered/Resolved]
  - Asthenia [Recovered/Resolved]
